FAERS Safety Report 9414825 (Version 1)
Quarter: 2013Q3

REPORT INFORMATION
  Report Type: Spontaneous
  Country: CA (occurrence: CA)
  Receive Date: 20130723
  Receipt Date: 20130723
  Transmission Date: 20140515
  Serious: Yes (Death)
  Sender: FDA-Public Use
  Company Number: CA-ASTRAZENECA-2013SE55056

PATIENT
  Age: 26 Year
  Sex: Female
  Weight: 38.6 kg

DRUGS (7)
  1. PROPOFOL [Suspect]
     Route: 042
  2. COLACE [Concomitant]
  3. DILANTIN [Concomitant]
  4. FRISIUM [Concomitant]
  5. LOSEC [Concomitant]
  6. NEURONTIN [Concomitant]
  7. TOPAMAX [Concomitant]

REACTIONS (1)
  - Cardiac disorder [Fatal]
